FAERS Safety Report 20155923 (Version 1)
Quarter: 2021Q4

REPORT INFORMATION
  Report Type: Spontaneous
  Country: CA (occurrence: CA)
  Receive Date: 20211207
  Receipt Date: 20211207
  Transmission Date: 20220303
  Serious: No
  Sender: FDA-Public Use
  Company Number: CA-VIVUS, Inc.-2021V1000108

PATIENT
  Age: 75 Year
  Sex: Female

DRUGS (1)
  1. PANCREAZE [Suspect]
     Active Substance: PANCRELIPASE AMYLASE\PANCRELIPASE LIPASE\PANCRELIPASE PROTEASE
     Indication: Product used for unknown indication
     Dosage: 16800 UNITS/56800 UNITS/98400 UNITS
     Route: 048
     Dates: start: 200906

REACTIONS (1)
  - Product taste abnormal [Not Recovered/Not Resolved]
